FAERS Safety Report 18551059 (Version 3)
Quarter: 2020Q4

REPORT INFORMATION
  Report Type: Report from Study
  Country: DE (occurrence: DE)
  Receive Date: 20201126
  Receipt Date: 20201229
  Transmission Date: 20210114
  Serious: Yes (Other)
  Sender: FDA-Public Use
  Company Number: NVSC2020DE315694

PATIENT
  Age: 57 Year
  Sex: Female
  Weight: 100 kg

DRUGS (14)
  1. FINGOLIMOD. [Suspect]
     Active Substance: FINGOLIMOD
     Dosage: 0.5 MG, WITH A TOTAL OF 193 TABLETS
     Route: 048
     Dates: start: 20200707
  2. AMLODIPIN [Concomitant]
     Active Substance: AMLODIPINE BESYLATE
     Indication: HYPERTENSION
     Dosage: 5 MG, QD
     Route: 065
     Dates: start: 20180915
  3. FINGOLIMOD. [Suspect]
     Active Substance: FINGOLIMOD
     Dosage: 0.5 MG
     Route: 048
     Dates: start: 20191031
  4. DOXAZOSIN [Concomitant]
     Active Substance: DOXAZOSIN MESYLATE
     Indication: HYPERTENSION
     Dosage: 2 MG, QD
     Route: 065
     Dates: start: 20181115
  5. ENALAPRIL [Concomitant]
     Active Substance: ENALAPRIL
     Indication: HYPERTENSION
     Dosage: 5 MG, QD
     Route: 065
     Dates: start: 20180901
  6. IBUFLAM [Concomitant]
     Indication: PAIN
     Dosage: 600 MG, PRN
     Route: 065
     Dates: start: 2015
  7. FINGOLIMOD. [Suspect]
     Active Substance: FINGOLIMOD
     Dosage: 0.5 MG
     Route: 048
     Dates: start: 20190418
  8. FINGOLIMOD. [Suspect]
     Active Substance: FINGOLIMOD
     Indication: SECONDARY PROGRESSIVE MULTIPLE SCLEROSIS
     Dosage: 0.5 MG
     Route: 048
     Dates: start: 20131009
  9. PANTOPRAZOL [Concomitant]
     Active Substance: PANTOPRAZOLE SODIUM
     Indication: ABDOMINAL DISCOMFORT
     Dosage: 40 MG, QD
     Route: 048
     Dates: start: 2013
  10. METOPROLOL. [Concomitant]
     Active Substance: METOPROLOL
     Indication: ARRHYTHMIA
     Dosage: 50 MG, QD
     Route: 065
     Dates: start: 2000
  11. TAVOR [Concomitant]
     Indication: PANIC ATTACK
     Dosage: 1 MG, QD
     Route: 065
     Dates: start: 2015
  12. L-THYROXIN [Concomitant]
     Active Substance: LEVOTHYROXINE SODIUM
     Indication: THYROID DISORDER
     Dosage: 100 MG, QD
     Route: 065
     Dates: start: 19780101
  13. MOXONIDIN [Concomitant]
     Active Substance: MOXONIDINE
     Indication: HYPERTENSION
     Dosage: 0.2 MG, BID
     Route: 048
     Dates: start: 201901
  14. FINGOLIMOD. [Suspect]
     Active Substance: FINGOLIMOD
     Dosage: 0.5 MG
     Route: 048
     Dates: start: 20181129

REACTIONS (3)
  - Ill-defined disorder [Unknown]
  - Multiple sclerosis relapse [Unknown]
  - Product use in unapproved indication [Unknown]

NARRATIVE: CASE EVENT DATE: 20200707
